FAERS Safety Report 12660582 (Version 1)
Quarter: 2016Q3

REPORT INFORMATION
  Report Type: Spontaneous
  Country: US (occurrence: US)
  Receive Date: 20160817
  Receipt Date: 20160817
  Transmission Date: 20161109
  Serious: No
  Sender: FDA-Public Use
  Company Number: US-PRESTIGE BRANDS -1056437

PATIENT
  Age: 66 Year
  Sex: Female

DRUGS (1)
  1. TAGAMET [Suspect]
     Active Substance: CIMETIDINE
     Indication: GASTRIC PH DECREASED
     Route: 048

REACTIONS (1)
  - Dysgeusia [Not Recovered/Not Resolved]
